FAERS Safety Report 6675290-5 (Version None)
Quarter: 2010Q2

REPORT INFORMATION
  Report Type: 
  Country: None (occurrence: None)
  Receive Date: 20100409
  Receipt Date: 20100302
  Transmission Date: 20101027
  Serious: No
  Sender: FDA-Public Use
  Company Number: A0839203A

PATIENT
  Age: 60 Year
  Sex: Female

DRUGS (9)
  1. TYKERB [Suspect]
     Indication: BREAST CANCER
     Dosage: 5TAB PER DAY
     Route: 048
     Dates: start: 20091001
  2. XELODA [Suspect]
     Indication: BREAST CANCER
     Dosage: 3TAB TWICE PER DAY
     Route: 048
     Dates: start: 20091001
  3. ALTABAX [Suspect]
     Indication: RASH
     Dosage: 1APP TWICE PER DAY
     Route: 061
     Dates: start: 20100111
  4. CORTAID [Concomitant]
  5. WELLBUTRIN XL [Concomitant]
  6. POTASSIUM [Concomitant]
  7. SYNTHROID [Concomitant]
  8. SPIRONOLACTONE [Concomitant]
  9. LASIX [Concomitant]

REACTIONS (5)
  - BURNING SENSATION [None]
  - DRUG INEFFECTIVE [None]
  - DRUG INTERACTION [None]
  - PRURITUS [None]
  - RASH [None]
